FAERS Safety Report 9238270 (Version 2)
Quarter: 2013Q2

REPORT INFORMATION
  Report Type: Spontaneous
  Country: US (occurrence: None)
  Receive Date: 20130415
  Receipt Date: 20130516
  Transmission Date: 20140414
  Serious: Yes (Disabling, Other)
  Sender: FDA-Public Use
  Company Number: ACO_35318_2013

PATIENT
  Age: 56 Year
  Sex: Female
  Weight: 90.7 kg

DRUGS (6)
  1. AMPYRA (DALFAMPRIDINE) TABLET, 10MG [Suspect]
     Indication: GAIT DISTURBANCE
     Route: 048
     Dates: start: 20111123, end: 20130327
  2. COPAXONE (GLATIRAMER ACETATE) [Concomitant]
  3. BACLOFEN (BACLOFEN) [Concomitant]
  4. OXYBUTYNIN (OXYBUTYNIN) [Concomitant]
  5. ATENOLOL (ATENOLOL) [Concomitant]
  6. SERTRALINE (SERTRALINE) (SERTRALINE) [Concomitant]

REACTIONS (8)
  - Dysstasia [None]
  - Cystitis [None]
  - Gait disturbance [None]
  - Sinus congestion [None]
  - Nasopharyngitis [None]
  - Asthenia [None]
  - Drug dose omission [None]
  - Disability [None]
